FAERS Safety Report 6719525-9 (Version None)
Quarter: 2010Q2

REPORT INFORMATION
  Report Type: 
  Country: None (occurrence: None)
  Receive Date: 20100511
  Receipt Date: 20100429
  Transmission Date: 20101027
  Serious: Yes (Other)
  Sender: FDA-Public Use
  Company Number: US-ROCHE-701751

PATIENT
  Sex: Female
  Weight: 58.1 kg

DRUGS (1)
  1. CAPECITABINE [Suspect]
     Indication: BREAST CANCER
     Dosage: DOSAGE: 3 PILLS AM PM
     Route: 048
     Dates: start: 20100308, end: 20100429

REACTIONS (1)
  - PULMONARY OEDEMA [None]
